FAERS Safety Report 6180293-3 (Version None)
Quarter: 2009Q2

REPORT INFORMATION
  Report Type: 
  Country: None (occurrence: None)
  Receive Date: 20090504
  Receipt Date: 20090504
  Transmission Date: 20091009
  Serious: No
  Sender: FDA-Public Use
  Company Number: None

PATIENT
  Age: 58 Year
  Sex: Male

DRUGS (2)
  1. LIDOCAINE [Suspect]
     Indication: CATHETERISATION CARDIAC
     Dosage: ONCE IV
     Route: 042
     Dates: start: 20090417, end: 20090417
  2. FENTANYL [Suspect]
     Indication: CATHETERISATION CARDIAC
     Dosage: 25 MCG ONCE IV
     Route: 042

REACTIONS (1)
  - ANAPHYLACTIC REACTION [None]
